FAERS Safety Report 26019136 (Version 1)
Quarter: 2025Q4

REPORT INFORMATION
  Report Type: Spontaneous
  Country: US (occurrence: US)
  Receive Date: 20251110
  Receipt Date: 20251110
  Transmission Date: 20260118
  Serious: Yes (Hospitalization, Other)
  Sender: HIKMA
  Company Number: US-HIKMA PHARMACEUTICALS USA INC.-US-H14001-24-04893

PATIENT
  Age: 63 Year
  Sex: Female

DRUGS (4)
  1. INFUMORPH [Suspect]
     Active Substance: MORPHINE SULFATE
     Dosage: 1.2 MILLIGRAM, QD
     Route: 037
  2. INFUMORPH [Suspect]
     Active Substance: MORPHINE SULFATE
     Dosage: 25 MILLIGRAM (MINIMUM RATE)
     Route: 037
  3. INFUMORPH [Suspect]
     Active Substance: MORPHINE SULFATE
     Dosage: 4 MILLIGRAM
     Route: 037
  4. INFUMORPH [Suspect]
     Active Substance: MORPHINE SULFATE
     Indication: Spinal pain
     Dosage: 8 MILLIGRAM
     Route: 037

REACTIONS (5)
  - Somnolence [Unknown]
  - Overdose [Unknown]
  - Underdose [None]
  - Drug intolerance [Unknown]
  - Anaesthetic complication [Unknown]

NARRATIVE: CASE EVENT DATE: 20240521
